FAERS Safety Report 11788243 (Version 1)
Quarter: 2015Q4

REPORT INFORMATION
  Report Type: Spontaneous
  Country: DE (occurrence: DE)
  Receive Date: 20151201
  Receipt Date: 20151201
  Transmission Date: 20160305
  Serious: Yes (Other)
  Sender: FDA-Public Use
  Company Number: DE-ROCHE-1669210

PATIENT
  Age: 55 Year
  Sex: Female

DRUGS (4)
  1. AVASTIN [Suspect]
     Active Substance: BEVACIZUMAB
     Indication: LUNG NEOPLASM MALIGNANT
     Dosage: COMBINATION THERAPY
     Route: 065
     Dates: end: 201202
  2. CISPLATIN. [Concomitant]
     Active Substance: CISPLATIN
     Indication: LUNG NEOPLASM MALIGNANT
     Route: 065
     Dates: start: 2011, end: 201202
  3. AVASTIN [Suspect]
     Active Substance: BEVACIZUMAB
     Dosage: MAINTENANCE THERAPY
     Route: 065
     Dates: start: 2012, end: 201505
  4. PEMETREXED [Concomitant]
     Active Substance: PEMETREXED
     Indication: LUNG NEOPLASM MALIGNANT
     Route: 065
     Dates: start: 2011, end: 201202

REACTIONS (8)
  - Hypertension [Unknown]
  - Polyarthritis [Unknown]
  - Haemoptysis [Recovered/Resolved]
  - Respiratory failure [Unknown]
  - Palmar erythema [Unknown]
  - Fatigue [Unknown]
  - Depression [Unknown]
  - Cardiac failure [Unknown]

NARRATIVE: CASE EVENT DATE: 201505
